FAERS Safety Report 5145801-X (Version None)
Quarter: 2006Q4

REPORT INFORMATION
  Report Type: 
  Country: None (occurrence: None)
  Receive Date: 20061108
  Receipt Date: 20061030
  Transmission Date: 20070319
  Serious: Yes (Other)
  Sender: FDA-Public Use
  Company Number: ES-JNJFOC-20060905261

PATIENT
  Age: 29 Year
  Sex: Female
  Weight: 88.5 kg

DRUGS (7)
  1. REMICADE [Suspect]
     Dosage: 5MG/KG, 5TH INFUSION
     Route: 042
  2. REMICADE [Suspect]
     Dosage: 5MG/KG, 4TH INFUSION
     Route: 042
  3. REMICADE [Suspect]
     Dosage: 5MG/KG, 3RD INFUSION
     Route: 042
  4. REMICADE [Suspect]
     Dosage: 5MG/KG, 2ND INFUSION
     Route: 042
  5. REMICADE [Suspect]
     Indication: CROHN'S DISEASE
     Dosage: 5MG/KG, 1ST INFUSION
     Route: 042
  6. IMUREL [Concomitant]
     Route: 065
  7. IMUREL [Concomitant]
     Indication: CROHN'S DISEASE
     Dosage: INITIATED 1 YEAR PRIOR TO REPORT
     Route: 065

REACTIONS (5)
  - DRY SKIN [None]
  - ECZEMA [None]
  - ICHTHYOSIS [None]
  - ONYCHOMYCOSIS [None]
  - SKIN EXFOLIATION [None]
